FAERS Safety Report 6234433-8 (Version None)
Quarter: 2009Q2

REPORT INFORMATION
  Report Type: 
  Country: None (occurrence: None)
  Receive Date: 20090618
  Receipt Date: 20090612
  Transmission Date: 20091009
  Serious: Yes (Hospitalization)
  Sender: FDA-Public Use
  Company Number: BR-ROCHE-637990

PATIENT
  Age: 40 Year
  Sex: Female

DRUGS (2)
  1. PEGASYS [Suspect]
     Indication: HEPATITIS C
     Route: 065
     Dates: start: 20090101, end: 20090601
  2. RIBAVIRIN [Concomitant]
     Indication: HEPATITIS C
     Dates: start: 20090101, end: 20090601

REACTIONS (3)
  - BRADYCARDIA [None]
  - HYPERTENSION [None]
  - QUADRIPLEGIA [None]
